FAERS Safety Report 24663804 (Version 4)
Quarter: 2025Q3

REPORT INFORMATION
  Report Type: Report from Study
  Country: EU (occurrence: EU)
  Receive Date: 20241126
  Receipt Date: 20250825
  Transmission Date: 20251021
  Serious: Yes (Other)
  Sender: NOVARTIS
  Company Number: EU-002147023-NVSC2023IT203841

PATIENT
  Age: 64 Year
  Sex: Female

DRUGS (2)
  1. COSENTYX [Suspect]
     Active Substance: SECUKINUMAB
     Indication: Psoriasis
     Dosage: 300 MG, QMO
     Route: 058
     Dates: start: 20210714
  2. METFORMIN [Concomitant]
     Active Substance: METFORMIN HYDROCHLORIDE
     Indication: Diabetes mellitus
     Route: 065

REACTIONS (27)
  - Diabetes mellitus [Not Recovered/Not Resolved]
  - Concomitant disease aggravated [Not Recovered/Not Resolved]
  - Erythema [Unknown]
  - Skin lesion [Unknown]
  - Parosmia [Unknown]
  - Arthralgia [Unknown]
  - Underdose [Unknown]
  - Inappropriate schedule of product administration [Unknown]
  - Guttate psoriasis [Not Recovered/Not Resolved]
  - Skin odour abnormal [Unknown]
  - Syringe issue [Not Recovered/Not Resolved]
  - Skin exfoliation [Unknown]
  - Dry skin [Unknown]
  - Accidental exposure to product [Unknown]
  - Pigmentation disorder [Unknown]
  - Scab [Recovering/Resolving]
  - Pruritus [Not Recovered/Not Resolved]
  - Liver function test increased [Recovered/Resolved]
  - Flatulence [Unknown]
  - Psoriasis [Not Recovered/Not Resolved]
  - Blood glucose increased [Unknown]
  - Transaminases increased [Unknown]
  - Nausea [Unknown]
  - Decreased appetite [Unknown]
  - Weight decreased [Unknown]
  - Pain in extremity [Unknown]
  - Joint contracture [Unknown]

NARRATIVE: CASE EVENT DATE: 20240113
